FAERS Safety Report 9026853 (Version 2)
Quarter: 2013Q1

REPORT INFORMATION
  Report Type: Spontaneous
  Country: BR (occurrence: BR)
  Receive Date: 20130123
  Receipt Date: 20130125
  Transmission Date: 20140127
  Serious: Yes (Death)
  Sender: FDA-Public Use
  Company Number: BR-PFIZER INC-2013025927

PATIENT
  Age: 71 Year
  Sex: Male

DRUGS (4)
  1. SUTENT [Suspect]
     Dosage: 50 MG, 1X/DAY
     Route: 048
  2. LOSARTAN [Concomitant]
  3. DEXAMETHASONE [Concomitant]
  4. OXCARBAZEPINE [Concomitant]

REACTIONS (1)
  - Death [Fatal]
